FAERS Safety Report 17210446 (Version 2)
Quarter: 2020Q1

REPORT INFORMATION
  Report Type: Report from Study
  Country: US (occurrence: US)
  Receive Date: 20191227
  Receipt Date: 20200117
  Transmission Date: 20200409
  Serious: Yes (Hospitalization, Other)
  Sender: FDA-Public Use
  Company Number: US-GILEAD-2019-0443848

PATIENT
  Age: 79 Year
  Sex: Female
  Weight: 90.9 kg

DRUGS (1)
  1. AMBRISENTAN [Suspect]
     Active Substance: AMBRISENTAN
     Indication: PRODUCT USED FOR UNKNOWN INDICATION
     Dosage: 10 MG
     Route: 065
     Dates: start: 20190422

REACTIONS (3)
  - Cardiac failure acute [Unknown]
  - Septic shock [Unknown]
  - Cellulitis [Unknown]
